FAERS Safety Report 5705665-X (Version None)
Quarter: 2008Q2

REPORT INFORMATION
  Report Type: 
  Country: None (occurrence: None)
  Receive Date: 20080415
  Receipt Date: 20080414
  Transmission Date: 20081010
  Serious: Yes (Other)
  Sender: FDA-Public Use
  Company Number: NL-BRISTOL-MYERS SQUIBB COMPANY-14149918

PATIENT
  Age: 32 Year
  Sex: Male

DRUGS (3)
  1. CISPLATIN [Suspect]
     Indication: TESTICULAR GERM CELL CANCER
  2. BLEOMYCIN SULFATE [Suspect]
     Indication: TESTICULAR GERM CELL CANCER
  3. ETOPOSIDE [Suspect]
     Indication: TESTICULAR GERM CELL CANCER

REACTIONS (2)
  - ARTERIAL THROMBOSIS [None]
  - SPLENIC INFARCTION [None]
